FAERS Safety Report 6972243-4 (Version None)
Quarter: 2010Q3

REPORT INFORMATION
  Report Type: 
  Country: None (occurrence: None)
  Receive Date: 20100909
  Receipt Date: 20100831
  Transmission Date: 20110219
  Serious: No
  Sender: FDA-Public Use
  Company Number: US-JNJFOC-20100901951

PATIENT
  Sex: Female
  Weight: 68.04 kg

DRUGS (2)
  1. FENTANYL CITRATE [Suspect]
     Indication: SPINAL CORD INJURY
     Route: 062
  2. FENTAYL [Suspect]
     Indication: SPINAL CORD INJURY
     Route: 062

REACTIONS (2)
  - ADVERSE EVENT [None]
  - WRONG TECHNIQUE IN DRUG USAGE PROCESS [None]
